FAERS Safety Report 8620056-X (Version None)
Quarter: 2012Q3

REPORT INFORMATION
  Report Type: 
  Country: None (occurrence: None)
  Receive Date: 20120824
  Receipt Date: 20120815
  Transmission Date: 20120928
  Serious: Yes (Hospitalization, Disabling, Other)
  Sender: FDA-Public Use
  Company Number: US-009507513-1206USA04851

PATIENT

DRUGS (10)
  1. VITAMIN B COMPLEX CAP [Concomitant]
     Indication: PROPHYLAXIS
     Dosage: 1000 MG, UNK
     Dates: start: 19920101
  2. FOSAMAX [Suspect]
     Indication: OSTEOPOROSIS PROPHYLAXIS
     Dosage: UNK
     Route: 048
     Dates: start: 20030101, end: 20060101
  3. ASCORBIC ACID [Concomitant]
     Indication: PROPHYLAXIS
     Dosage: 1000 MG, UNK
     Dates: start: 19920101
  4. CALCIUM (UNSPECIFIED) [Concomitant]
     Indication: PROPHYLAXIS
     Dosage: 1000 MG, UNK
     Dates: start: 19920101
  5. ACTONEL [Suspect]
     Indication: OSTEOPOROSIS
     Dosage: UNK
     Dates: start: 20060101, end: 20110101
  6. FLAXSEED [Concomitant]
     Indication: PROPHYLAXIS
     Dosage: 1000 MG, QD
     Dates: start: 19920101
  7. LOVAZA [Concomitant]
     Indication: PROPHYLAXIS
     Dosage: 1200 MG, UNK
     Dates: start: 19920101
  8. FOSAMAX [Suspect]
     Indication: OSTEOPENIA
     Dosage: UNK
     Route: 048
     Dates: start: 20010101
  9. VITAMIN E [Concomitant]
     Indication: PROPHYLAXIS
     Dosage: UNK
     Dates: start: 19920101
  10. VITAMIN D [Concomitant]
     Indication: PROPHYLAXIS
     Dosage: 1000 MG, UNK
     Dates: start: 19920101

REACTIONS (19)
  - LOW TURNOVER OSTEOPATHY [None]
  - OPEN REDUCTION OF FRACTURE [None]
  - LOWER LIMB FRACTURE [None]
  - ANAEMIA POSTOPERATIVE [None]
  - OSTEOARTHRITIS [None]
  - PELVIC FRACTURE [None]
  - HYSTERECTOMY [None]
  - TIBIA FRACTURE [None]
  - OSTEOPOROSIS [None]
  - TOOTH FRACTURE [None]
  - ESSENTIAL HYPERTENSION [None]
  - DYSLIPIDAEMIA [None]
  - FEMUR FRACTURE [None]
  - IMPAIRED HEALING [None]
  - STRESS FRACTURE [None]
  - ATROPHIC VULVOVAGINITIS [None]
  - TOOTH EXTRACTION [None]
  - TOOTH ABSCESS [None]
  - FALL [None]
